FAERS Safety Report 19578891 (Version 1)
Quarter: 2021Q3

REPORT INFORMATION
  Report Type: Report from Study
  Country: CA (occurrence: CA)
  Receive Date: 20210719
  Receipt Date: 20210719
  Transmission Date: 20211014
  Serious: Yes (Other)
  Sender: FDA-Public Use
  Company Number: CA-NALPROPION PHARMACEUTICALS INC.-2021-013003

PATIENT

DRUGS (11)
  1. CONTRAVE [Suspect]
     Active Substance: BUPROPION HYDROCHLORIDE\NALTREXONE HYDROCHLORIDE
     Dosage: 90/8MG, 2 TABLETS IN THE MORNING AND 2 TABLETS IN THE EVENING
     Route: 048
     Dates: start: 20210507, end: 202106
  2. XOLAIR [Concomitant]
     Active Substance: OMALIZUMAB
     Indication: EMPHYSEMA
     Dosage: 1 IN 2 WK
  3. ESTRADOT [Suspect]
     Active Substance: ESTRADIOL
     Indication: MENOPAUSE
     Dosage: ROUTE: PATCH, AT STOPPED AT APPROXIMATELY 10/MAY/2021
     Route: 065
     Dates: end: 202105
  4. INCRUSE ELLIPTA [Concomitant]
     Active Substance: UMECLIDINIUM BROMIDE
     Indication: EMPHYSEMA
     Dosage: PUFF IN MORNING (1 IN 1 D) ROUTE: INHALATION
     Route: 055
  5. CONTRAVE [Suspect]
     Active Substance: BUPROPION HYDROCHLORIDE\NALTREXONE HYDROCHLORIDE
     Indication: WEIGHT CONTROL
     Dosage: FORM STRENGTH : 90/8 MG (1 DOSAGE FORMS,1 IN 1 D)
     Route: 048
     Dates: start: 20210416, end: 2021
  6. CONTRAVE [Suspect]
     Active Substance: BUPROPION HYDROCHLORIDE\NALTREXONE HYDROCHLORIDE
     Dosage: 90/8 MG, 2 TABLETS DAILY FOR 2 WEEKS
     Route: 048
     Dates: start: 20210614, end: 20210627
  7. CONTRAVE [Suspect]
     Active Substance: BUPROPION HYDROCHLORIDE\NALTREXONE HYDROCHLORIDE
     Dosage: 90/8 MG, DOSE REDUCED, 1 TABLETS DAILY FOR 2 DAYS
     Route: 048
     Dates: start: 20210628, end: 20210629
  8. BREO ELLIPTA [Concomitant]
     Active Substance: FLUTICASONE FUROATE\VILANTEROL TRIFENATATE
     Indication: EMPHYSEMA
     Dosage: PUFF IN MORNING (1 IN 1 D) ROUTE: INHALATION
     Route: 055
  9. PROMETRIUM [Suspect]
     Active Substance: PROGESTERONE
     Indication: MENOPAUSE
     Dosage: AT BEDTIME STOPPED APPROXIMATELY 10/MAY/2021
     Route: 048
     Dates: end: 202105
  10. TECTA [Concomitant]
     Active Substance: PANTOPRAZOLE MAGNESIUM
     Indication: GASTROOESOPHAGEAL REFLUX DISEASE
     Dosage: 2 DOSAGE FORMS (1 DOSAGE FORMS,1 IN 12 HR)
     Route: 048
  11. ROSUVASTATIN. [Concomitant]
     Active Substance: ROSUVASTATIN
     Indication: BLOOD CHOLESTEROL ABNORMAL
     Dosage: AT BEDTIME (10 MG, 1 IN 1 D)
     Route: 048

REACTIONS (25)
  - Faeces hard [Not Recovered/Not Resolved]
  - Middle insomnia [Unknown]
  - Dry mouth [Not Recovered/Not Resolved]
  - Asthenia [Unknown]
  - Drug titration error [Unknown]
  - Dyschezia [Not Recovered/Not Resolved]
  - Dizziness [Recovered/Resolved]
  - Fatigue [Unknown]
  - Inappropriate schedule of product administration [Unknown]
  - Haemorrhage [Unknown]
  - Constipation [Recovered/Resolved]
  - Therapeutic product effect incomplete [Unknown]
  - Respiration abnormal [Unknown]
  - Poor quality sleep [Recovered/Resolved]
  - Hot flush [Not Recovered/Not Resolved]
  - Tremor [Recovered/Resolved]
  - Asthenopia [Unknown]
  - Abdominal discomfort [Not Recovered/Not Resolved]
  - Nausea [Recovered/Resolved]
  - Muscle tightness [Unknown]
  - Product prescribing error [Unknown]
  - Application site pain [Unknown]
  - Anxiety [Not Recovered/Not Resolved]
  - Tinnitus [Not Recovered/Not Resolved]
  - Vomiting [Unknown]

NARRATIVE: CASE EVENT DATE: 2021
